FAERS Safety Report 8260819-6 (Version None)
Quarter: 2012Q2

REPORT INFORMATION
  Report Type: 
  Country: None (occurrence: None)
  Receive Date: 20120405
  Receipt Date: 20120330
  Transmission Date: 20120825
  Serious: Yes (Other)
  Sender: FDA-Public Use
  Company Number: US-RB-036896-12

PATIENT
  Age: 71 Year
  Sex: Female

DRUGS (2)
  1. MUCINEX [Suspect]
     Route: 048
     Dates: start: 20120324
  2. MUCINEX [Suspect]
     Indication: PRODUCT USED FOR UNKNOWN INDICATION
     Route: 048
     Dates: start: 20120325

REACTIONS (4)
  - NAUSEA [None]
  - MEMORY IMPAIRMENT [None]
  - CONFUSIONAL STATE [None]
  - HALLUCINATION [None]
